FAERS Safety Report 6065978-1 (Version None)
Quarter: 2009Q1

REPORT INFORMATION
  Report Type: 
  Country: None (occurrence: None)
  Receive Date: 20090205
  Receipt Date: 20090128
  Transmission Date: 20090719
  Serious: Yes (Other)
  Sender: FDA-Public Use
  Company Number: GB-AMGEN-US330373

PATIENT
  Sex: Female
  Weight: 54.1 kg

DRUGS (6)
  1. ENBREL [Suspect]
     Indication: RHEUMATOID ARTHRITIS
     Route: 058
     Dates: start: 20080901
  2. CALCICHEW [Concomitant]
     Indication: OSTEOPOROSIS
     Route: 048
     Dates: start: 20080601
  3. AMITRIPTYLINE HCL [Concomitant]
     Indication: PAIN
     Route: 048
     Dates: start: 20040101
  4. ALENDRONATE SODIUM [Concomitant]
     Indication: OSTEOPOROSIS
     Route: 048
     Dates: start: 20080601
  5. ORAMORPH SR [Concomitant]
     Indication: PAIN
     Dosage: 10MG/5ML, FREQUENCY UNSPECIFIED
     Route: 048
     Dates: start: 20070601
  6. ACETAMINOPHEN [Concomitant]
     Indication: PAIN
     Route: 048
     Dates: start: 20040101

REACTIONS (5)
  - GLOSSITIS [None]
  - GLOSSODYNIA [None]
  - MOUTH ULCERATION [None]
  - ORAL CANDIDIASIS [None]
  - TONGUE DISORDER [None]
